FAERS Safety Report 23575586 (Version 2)
Quarter: 2024Q1

REPORT INFORMATION
  Report Type: Spontaneous
  Country: IN (occurrence: None)
  Receive Date: 20240228
  Receipt Date: 20240313
  Transmission Date: 20240410
  Serious: Yes (Death, Hospitalization)
  Sender: FDA-Public Use
  Company Number: IN-ROCHE-3515866

PATIENT
  Age: 6 Year
  Sex: Male
  Weight: 18 kg

DRUGS (5)
  1. HEMLIBRA [Suspect]
     Active Substance: EMICIZUMAB-KXWH
     Indication: Factor VIII deficiency
     Dosage: FOUR LOADING DOSES
     Route: 065
     Dates: start: 20230406
  2. HEMLIBRA [Suspect]
     Active Substance: EMICIZUMAB-KXWH
     Dosage: LAST DOSE:23/FEB/2024
     Route: 065
     Dates: start: 20230406
  3. BYCLOT [Concomitant]
     Active Substance: COAGULATION FACTOR VII HUMAN\COAGULATION FACTOR X HUMAN
  4. FEIBA [Concomitant]
     Active Substance: ANTI-INHIBITOR COAGULANT COMPLEX
  5. NOVOSEVEN [Concomitant]
     Active Substance: COAGULATION FACTOR VIIA RECOMBINANT HUMAN

REACTIONS (9)
  - Traumatic haemorrhage [Fatal]
  - Subdural haemorrhage [Fatal]
  - Cerebral infarction [Fatal]
  - Injury [Fatal]
  - Tachycardia [Unknown]
  - Hypotension [Unknown]
  - Cardiac arrest [Unknown]
  - Respiratory failure [Unknown]
  - Peripheral pulse decreased [Unknown]

NARRATIVE: CASE EVENT DATE: 20240224
